FAERS Safety Report 8765620 (Version 2)
Quarter: 2013Q1

REPORT INFORMATION
  Report Type: Report from Study
  Country: US (occurrence: US)
  Receive Date: 20120831
  Receipt Date: 20130107
  Transmission Date: 20140127
  Serious: Yes (Hospitalization, Other)
  Sender: FDA-Public Use
  Company Number: US-BAYER-2012-090218

PATIENT
  Age: 63 Year
  Sex: Female

DRUGS (17)
  1. ACETYLSALICYLIC ACID({=100 MG) [Suspect]
     Indication: CARDIOVASCULAR DISORDER
     Dosage: DAILY DOSE 81 MG
     Route: 048
  2. SAXAGLIPTIN [Suspect]
     Indication: TYPE 2 DIABETES MELLITUS
     Dosage: 5 MG, QD
     Route: 048
     Dates: start: 20110114
  3. PLACEBO [Suspect]
     Route: 048
  4. METFORMIN HCL [Suspect]
     Indication: DIABETES MELLITUS
     Dosage: 850 MG, BID
     Route: 048
     Dates: end: 20120922
  5. HUMALOG [Suspect]
     Dosage: DAILY DOSE 30 MCMOL/L
     Route: 058
  6. LEVEMIR [Suspect]
     Dosage: 1 DF, QD
     Route: 058
  7. LANTUS [Suspect]
     Dosage: 40 IU, UNK
  8. LOSARTAN [Suspect]
     Dosage: 100 MG, QD
     Route: 048
  9. FUROSEMIDE [Suspect]
     Dosage: DAILY DOSE 40 MG
     Route: 048
  10. SPIRONOLACTONE [Concomitant]
  11. AMLODIPINE [Concomitant]
  12. FLUVOXAMINE [Concomitant]
  13. CARVEDILOL [Concomitant]
  14. GABAPENTIN [Concomitant]
  15. PRAVACHOL [Concomitant]
  16. RANITIDINE [Concomitant]
  17. MELOXICAM [Concomitant]

REACTIONS (7)
  - Diabetic ketoacidosis [Recovered/Resolved]
  - Nausea [Recovered/Resolved]
  - Vomiting [Recovered/Resolved]
  - Pain [Recovered/Resolved]
  - Diarrhoea [Recovered/Resolved]
  - Renal impairment [Recovered/Resolved]
  - Dehydration [Recovered/Resolved]
